FAERS Safety Report 5855770-2 (Version None)
Quarter: 2008Q3

REPORT INFORMATION
  Report Type: 
  Country: None (occurrence: None)
  Receive Date: 20080825
  Receipt Date: 20080821
  Transmission Date: 20090109
  Serious: Yes (Hospitalization)
  Sender: FDA-Public Use
  Company Number: GB-BRISTOL-MYERS SQUIBB COMPANY-14309058

PATIENT
  Age: 63 Year
  Sex: Female

DRUGS (4)
  1. CARBOPLATIN [Suspect]
     Indication: NON-SMALL CELL LUNG CANCER
     Dates: start: 20080701
  2. CARBOPLATIN [Suspect]
     Indication: LUNG CANCER METASTATIC
     Dates: start: 20080701
  3. NAVELBINE [Suspect]
     Indication: NON-SMALL CELL LUNG CANCER
     Dates: start: 20080701
  4. NAVELBINE [Suspect]
     Indication: LUNG CANCER METASTATIC
     Dates: start: 20080701

REACTIONS (1)
  - MUSCULAR WEAKNESS [None]
